FAERS Safety Report 8999725 (Version 2)
Quarter: 2013Q1

REPORT INFORMATION
  Report Type: Spontaneous
  Country: DE (occurrence: DE)
  Receive Date: 20130102
  Receipt Date: 20130121
  Transmission Date: 20140127
  Serious: Yes (Other)
  Sender: FDA-Public Use
  Company Number: DE-GLAXOSMITHKLINE-D0078275A

PATIENT
  Sex: Male
  Weight: 85 kg

DRUGS (3)
  1. VIANI FORTE [Suspect]
     Indication: ASTHMA
     Dosage: 1000MCG TWICE PER DAY
     Route: 055
     Dates: start: 201209
  2. XOLAIR [Concomitant]
     Indication: ASTHMA
     Dosage: 300MG MONTHLY
     Route: 065
  3. SINGULAIR [Concomitant]
     Dosage: 10MG PER DAY
     Route: 048

REACTIONS (4)
  - Cushing^s syndrome [Unknown]
  - Central obesity [Not Recovered/Not Resolved]
  - Skin striae [Not Recovered/Not Resolved]
  - Overdose [Unknown]
